FAERS Safety Report 4868958-4 (Version None)
Quarter: 2005Q4

REPORT INFORMATION
  Report Type: 
  Country: None (occurrence: None)
  Receive Date: 20051223
  Receipt Date: 20051215
  Transmission Date: 20060501
  Serious: Yes (Other)
  Sender: FDA-Public Use
  Company Number: 2005158709

PATIENT
  Age: 28 Year
  Sex: Female

DRUGS (4)
  1. NIFEDIPINE [Suspect]
     Indication: HYPERTENSION
     Dosage: 60 MG (DAILY)
  2. ATENOLOL [Suspect]
     Indication: HYPERTENSION
     Dosage: 50 MG (DALY)
  3. RAMIPRIL [Suspect]
     Indication: HYPERTENSION
     Dosage: 50 MG (DAILY)
  4. HYDROXYCHLOROQUINE SULFATE [Suspect]
     Indication: HYPERTENSION
     Dosage: 200 MG (DAILY)

REACTIONS (10)
  - CAESAREAN SECTION [None]
  - CONDITION AGGRAVATED [None]
  - DRUG EXPOSURE BEFORE PREGNANCY [None]
  - DRUG EXPOSURE DURING PREGNANCY [None]
  - HYPERTENSION [None]
  - OLIGOHYDRAMNIOS [None]
  - PREGNANCY [None]
  - PREMATURE BABY [None]
  - RENAL IMPAIRMENT [None]
  - UMBILICAL CORD VASCULAR DISORDER [None]
